FAERS Safety Report 19014983 (Version 1)
Quarter: 2021Q1

REPORT INFORMATION
  Report Type: Spontaneous
  Country: US (occurrence: US)
  Receive Date: 20210316
  Receipt Date: 20210316
  Transmission Date: 20210420
  Serious: No
  Sender: FDA-Public Use
  Company Number: US-SA-2021SA075269

PATIENT
  Sex: Female

DRUGS (2)
  1. ALLEGRA ALLERGY [Suspect]
     Active Substance: FEXOFENADINE HYDROCHLORIDE
     Indication: RHINORRHOEA
     Dosage: DRUG INTERVAL DOSAGE : 2 TIMES A DAY
  2. CLARITIN [Concomitant]
     Active Substance: LORATADINE
     Indication: RHINORRHOEA
     Dosage: UNK

REACTIONS (1)
  - Drug ineffective [Unknown]
